FAERS Safety Report 25840626 (Version 2)
Quarter: 2025Q3

REPORT INFORMATION
  Report Type: Spontaneous
  Country: JO (occurrence: JO)
  Receive Date: 20250924
  Receipt Date: 20250929
  Transmission Date: 20251021
  Serious: Yes (Death, Life-Threatening, Disabling, Other)
  Sender: BRISTOL-MYERS SQUIBB COMPANY
  Company Number: JO-BRISTOL-MYERS SQUIBB COMPANY-2025-130636

PATIENT
  Age: 54 Year
  Sex: Female

DRUGS (1)
  1. THALIDOMIDE [Suspect]
     Active Substance: THALIDOMIDE
     Indication: Plasma cell myeloma
     Dates: start: 202508, end: 202509

REACTIONS (1)
  - Death [Fatal]

NARRATIVE: CASE EVENT DATE: 20250922
